FAERS Safety Report 5073722-X (Version None)
Quarter: 2006Q3

REPORT INFORMATION
  Report Type: 
  Country: None (occurrence: None)
  Receive Date: 20060808
  Receipt Date: 20041224
  Transmission Date: 20061208
  Serious: No
  Sender: FDA-Public Use
  Company Number: US-AMGEN-KDL104992

PATIENT
  Sex: Male
  Weight: 113 kg

DRUGS (9)
  1. PROCRIT [Suspect]
     Indication: RENAL FAILURE CHRONIC
     Dates: start: 20040601, end: 20041201
  2. LANTUS [Suspect]
  3. AVANDIA [Suspect]
  4. GLIPIZIDE [Suspect]
  5. ASPIRIN [Concomitant]
  6. INSULIN [Concomitant]
  7. DIAZEPAM [Concomitant]
  8. ZOCOR [Concomitant]
  9. CLONIDINE [Concomitant]

REACTIONS (4)
  - CONDITION AGGRAVATED [None]
  - HYPERTENSION [None]
  - OEDEMA [None]
  - WEIGHT INCREASED [None]
